FAERS Safety Report 6358910-4 (Version None)
Quarter: 2009Q3

REPORT INFORMATION
  Report Type: 
  Country: None (occurrence: None)
  Receive Date: 20090916
  Receipt Date: 20090827
  Transmission Date: 20100115
  Serious: No
  Sender: FDA-Public Use
  Company Number: US-ABBOTT-09P-163-0594703-00

PATIENT
  Sex: Female
  Weight: 95.794 kg

DRUGS (6)
  1. TRILIPIX [Suspect]
     Indication: BLOOD CHOLESTEROL INCREASED
     Dates: start: 20090823, end: 20090825
  2. ATENOLOL [Concomitant]
     Indication: ATRIAL FIBRILLATION
  3. COUMADIN [Concomitant]
     Indication: ATRIAL FIBRILLATION
  4. DOXYCYCLINE [Concomitant]
     Indication: ROSACEA
  5. ASPIRIN [Concomitant]
     Indication: ATRIAL FIBRILLATION
  6. LISINOPRIL [Concomitant]
     Indication: HYPERTENSION

REACTIONS (3)
  - HEART RATE INCREASED [None]
  - HEART RATE IRREGULAR [None]
  - HYPERHIDROSIS [None]
